FAERS Safety Report 8119237-3 (Version None)
Quarter: 2011Q4

REPORT INFORMATION
  Report Type: 
  Country: None (occurrence: None)
  Receive Date: 20111227
  Receipt Date: 20111025
  Transmission Date: 20120403
  Serious: No
  Sender: FDA-Public Use
  Company Number: PHEH2011US05192

PATIENT
  Age: 59 Year
  Sex: Female

DRUGS (21)
  1. MORPHINE [Concomitant]
  2. METFORMIN HCL [Concomitant]
  3. VYTORIN [Concomitant]
  4. NEXIUM [Concomitant]
  5. AVAPRO [Concomitant]
  6. CARDURA [Concomitant]
  7. CALCIUM CARBONATE [Concomitant]
  8. ALLEGRA [Concomitant]
  9. REMIFEMIN (CIMICIFUGA RACEMOSA ROOT) [Concomitant]
  10. FOLIC ACID [Concomitant]
  11. SYNTHROID [Concomitant]
  12. VITAMIN D [Concomitant]
  13. VITAMIN B6 [Concomitant]
  14. LASIX [Concomitant]
  15. GILENYA [Suspect]
     Indication: MULTIPLE SCLEROSIS
     Dosage: 0.5 MG, QD, ORAL
     Route: 048
     Dates: start: 20110805
  16. VITAMIN B12 [Concomitant]
  17. DILAUIDID (HYDROMORPHONE HYDROCHLORIDE) [Concomitant]
  18. ARAVA [Concomitant]
  19. POTASSIUM CHLORIDE [Concomitant]
  20. PLAQUENIL [Concomitant]
  21. VIVELE-DOT (ESTRADIOL) [Concomitant]

REACTIONS (2)
  - CHILLS [None]
  - HYPERHIDROSIS [None]
